FAERS Safety Report 16024807 (Version 5)
Quarter: 2019Q3

REPORT INFORMATION
  Report Type: Spontaneous
  Country: US (occurrence: US)
  Receive Date: 20190301
  Receipt Date: 20190823
  Transmission Date: 20191004
  Serious: Yes (Hospitalization, Other)
  Sender: FDA-Public Use
  Company Number: US-ASTRAZENECA-2018SF26391

PATIENT
  Age: 11379 Day
  Sex: Female

DRUGS (24)
  1. PROTONIX [Suspect]
     Active Substance: PANTOPRAZOLE SODIUM
     Indication: GASTROOESOPHAGEAL REFLUX DISEASE
     Route: 065
     Dates: start: 200002, end: 201805
  2. KEFLEX [Concomitant]
     Active Substance: CEPHALEXIN
  3. PROTONIX [Suspect]
     Active Substance: PANTOPRAZOLE SODIUM
     Indication: GASTROOESOPHAGEAL REFLUX DISEASE
     Route: 065
  4. ULTRACET [Concomitant]
     Active Substance: ACETAMINOPHEN\TRAMADOL HYDROCHLORIDE
  5. PREVACID 24 HR [Suspect]
     Active Substance: LANSOPRAZOLE
     Route: 065
  6. CODEINE [Concomitant]
     Active Substance: CODEINE
  7. PEPCID [Concomitant]
     Active Substance: FAMOTIDINE
  8. LEVAQUIN [Concomitant]
     Active Substance: LEVOFLOXACIN
  9. AMBIEN [Concomitant]
     Active Substance: ZOLPIDEM TARTRATE
  10. OXYCODONE [Concomitant]
     Active Substance: OXYCODONE
  11. IBUPROFEN. [Concomitant]
     Active Substance: IBUPROFEN
  12. NEXIUM [Suspect]
     Active Substance: ESOMEPRAZOLE MAGNESIUM
     Indication: GASTROOESOPHAGEAL REFLUX DISEASE
     Route: 048
     Dates: start: 200102, end: 201805
  13. PRILOSEC [Suspect]
     Active Substance: OMEPRAZOLE MAGNESIUM
     Indication: GASTROOESOPHAGEAL REFLUX DISEASE
     Route: 048
     Dates: start: 199608, end: 201805
  14. PRILOSEC OTC [Suspect]
     Active Substance: OMEPRAZOLE MAGNESIUM
     Route: 048
  15. PREVACID [Suspect]
     Active Substance: LANSOPRAZOLE
     Route: 065
  16. NUCYNTA [Concomitant]
     Active Substance: TAPENTADOL HYDROCHLORIDE
  17. NEXIUM [Suspect]
     Active Substance: ESOMEPRAZOLE MAGNESIUM
     Indication: GASTROOESOPHAGEAL REFLUX DISEASE
     Route: 048
  18. ASPIRIN. [Concomitant]
     Active Substance: ASPIRIN
  19. NORFLEX [Concomitant]
     Active Substance: ORPHENADRINE CITRATE
  20. LATEX [Concomitant]
     Active Substance: NATURAL LATEX RUBBER
  21. PRILOSEC [Suspect]
     Active Substance: OMEPRAZOLE MAGNESIUM
     Indication: GASTROOESOPHAGEAL REFLUX DISEASE
     Route: 048
     Dates: start: 19960801, end: 20180501
  22. NEXIUM 24HR [Suspect]
     Active Substance: ESOMEPRAZOLE MAGNESIUM
     Route: 048
  23. TYLENOL [Concomitant]
     Active Substance: ACETAMINOPHEN
  24. PERCOCET [Concomitant]
     Active Substance: ACETAMINOPHEN\OXYCODONE HYDROCHLORIDE

REACTIONS (6)
  - Renal injury [Unknown]
  - Nephrogenic anaemia [Not Recovered/Not Resolved]
  - Tubulointerstitial nephritis [Unknown]
  - Acute kidney injury [Unknown]
  - Renal failure [Unknown]
  - Chronic kidney disease [Not Recovered/Not Resolved]

NARRATIVE: CASE EVENT DATE: 20100620
